FAERS Safety Report 17970500 (Version 2)
Quarter: 2020Q3

REPORT INFORMATION
  Report Type: Spontaneous
  Country: CA (occurrence: CA)
  Receive Date: 20200702
  Receipt Date: 20200708
  Transmission Date: 20201103
  Serious: Yes (Death, Hospitalization)
  Sender: FDA-Public Use
  Company Number: CA-ASTRAZENECA-2020SE82583

PATIENT
  Age: 27100 Day
  Sex: Female

DRUGS (3)
  1. LYNPARZA [Suspect]
     Active Substance: OLAPARIB
     Indication: OVARIAN CANCER
     Dosage: 200.0MG UNKNOWN
     Route: 048
     Dates: start: 20191218, end: 202001
  2. LYNPARZA [Suspect]
     Active Substance: OLAPARIB
     Indication: OVARIAN CANCER
     Dosage: 200.0MG UNKNOWN
     Route: 048
     Dates: start: 202001, end: 20200609
  3. TYLENOL [Concomitant]
     Active Substance: ACETAMINOPHEN

REACTIONS (2)
  - Malignant neoplasm progression [Fatal]
  - Leukoerythroblastosis [Unknown]

NARRATIVE: CASE EVENT DATE: 20200609
